FAERS Safety Report 5621739-6 (Version None)
Quarter: 2008Q1

REPORT INFORMATION
  Report Type: 
  Country: None (occurrence: None)
  Receive Date: 20080211
  Receipt Date: 20080131
  Transmission Date: 20080703
  Serious: Yes (Hospitalization)
  Sender: FDA-Public Use
  Company Number: ES-TEVA-167071ISR

PATIENT
  Age: 64 Year
  Sex: Male

DRUGS (4)
  1. PACLITAXEL [Suspect]
     Indication: NASOPHARYNGEAL CANCER
  2. DOXORUBICIN [Suspect]
     Indication: NASOPHARYNGEAL CANCER
  3. CISPLATIN [Suspect]
     Indication: NASOPHARYNGEAL CANCER
  4. DOCETAXEL [Suspect]
     Indication: NASOPHARYNGEAL CANCER

REACTIONS (1)
  - PHARYNGEAL DISORDER [None]
